FAERS Safety Report 24369443 (Version 1)
Quarter: 2024Q3

REPORT INFORMATION
  Report Type: Report from Study
  Country: US (occurrence: US)
  Receive Date: 20240927
  Receipt Date: 20240927
  Transmission Date: 20241017
  Serious: No
  Sender: ROCHE
  Company Number: US-ROCHE-3053632

PATIENT
  Age: 79 Year
  Sex: Female

DRUGS (20)
  1. LUCENTIS [Suspect]
     Active Substance: RANIBIZUMAB
     Indication: Retinal disorder
     Route: 050
  2. LUCENTIS [Suspect]
     Active Substance: RANIBIZUMAB
     Indication: Neovascular age-related macular degeneration
  3. LUCENTIS [Suspect]
     Active Substance: RANIBIZUMAB
     Indication: Choroidal neovascularisation
  4. VABYSMO [Suspect]
     Active Substance: FARICIMAB-SVOA
     Indication: Retinal disorder
     Route: 065
  5. PROTONIX I.V. [Concomitant]
     Active Substance: PANTOPRAZOLE SODIUM
  6. DIOVAN [Concomitant]
     Active Substance: VALSARTAN
  7. TOPROL XL [Concomitant]
     Active Substance: METOPROLOL SUCCINATE
  8. ASPIRIN [Concomitant]
     Active Substance: ASPIRIN
  9. LEVOTHROID [Concomitant]
     Active Substance: LEVOTHYROXINE SODIUM
  10. EXCEDRIN MIGRAINE [Concomitant]
     Active Substance: ACETAMINOPHEN\ASPIRIN\CAFFEINE
     Dosage: 250 MG-250 MG-65 MG
  11. METOPROLOL SUCCINATE [Concomitant]
     Active Substance: METOPROLOL SUCCINATE
     Dosage: EVERY DAY AT BEDTIME
     Route: 048
  12. ESTRACE [Concomitant]
     Active Substance: ESTRADIOL
  13. LATANOPROST [Concomitant]
     Active Substance: LATANOPROST
     Dosage: INTO AFFECTED EYE IN THE EVENING
     Route: 047
  14. LEVOTHYROXINE SODIUM [Concomitant]
     Active Substance: LEVOTHYROXINE SODIUM
     Route: 048
  15. LOSARTAN POTASSIUM [Concomitant]
     Active Substance: LOSARTAN POTASSIUM
  16. GABAPENTIN [Concomitant]
     Active Substance: GABAPENTIN
     Route: 048
  17. CALCIUM [Concomitant]
     Active Substance: CALCIUM
  18. TIMOLOL [Concomitant]
     Active Substance: TIMOLOL
     Dosage: 1 DROP QAM (LAST TAKEN: 26/JUL/2021)
  19. DORZOLAMIDE HYDROCHLORIDE\TIMOLOL MALEATE [Concomitant]
     Active Substance: DORZOLAMIDE HYDROCHLORIDE\TIMOLOL MALEATE
     Dosage: 22. 3 MG AND 6.8 MG/ML
  20. LATANOPROST [Concomitant]
     Active Substance: LATANOPROST

REACTIONS (3)
  - No adverse event [Unknown]
  - Off label use [Unknown]
  - Off label use [Unknown]
